FAERS Safety Report 8499710-9 (Version None)
Quarter: 2012Q3

REPORT INFORMATION
  Report Type: 
  Country: None (occurrence: None)
  Receive Date: 20120710
  Receipt Date: 20120628
  Transmission Date: 20120928
  Serious: Yes (Other)
  Sender: FDA-Public Use
  Company Number: JP-VERTEX PHARMACEUTICALS INC.-AE-2012-009784

PATIENT
  Age: 49 Year
  Sex: Female

DRUGS (15)
  1. REBETOL [Concomitant]
     Route: 048
     Dates: start: 20120523, end: 20120613
  2. AMOBAN [Concomitant]
     Route: 048
     Dates: start: 20120508
  3. MAGMITT [Concomitant]
     Route: 048
     Dates: start: 20120426
  4. REBETOL [Concomitant]
     Route: 048
     Dates: start: 20120518, end: 20120522
  5. OMEPRAZOLE [Concomitant]
     Route: 048
     Dates: start: 20120112
  6. TELAVIC (TELAPREVIR) [Suspect]
     Route: 048
     Dates: start: 20120512
  7. PEG-INTRON [Concomitant]
     Route: 058
     Dates: start: 20120530
  8. REBETOL [Concomitant]
     Route: 048
     Dates: start: 20120512, end: 20120517
  9. ADJUST A [Concomitant]
     Route: 048
     Dates: start: 20120518, end: 20120521
  10. KENALOG [Concomitant]
     Route: 049
     Dates: start: 20120613
  11. TELAVIC (TELAPREVIR) [Suspect]
     Indication: HEPATITIS C
     Route: 048
     Dates: start: 20120508, end: 20120511
  12. REBETOL [Concomitant]
     Route: 048
     Dates: start: 20120614
  13. PEG-INTRON [Concomitant]
     Route: 058
     Dates: start: 20120523, end: 20120523
  14. REBETOL [Concomitant]
     Indication: HEPATITIS C
     Route: 048
     Dates: start: 20120508, end: 20120511
  15. PEG-INTRON [Concomitant]
     Indication: HEPATITIS C
     Route: 058
     Dates: start: 20120508, end: 20120516

REACTIONS (1)
  - NEUTROPHIL COUNT DECREASED [None]
